FAERS Safety Report 9363403 (Version 2)
Quarter: 2013Q4

REPORT INFORMATION
  Report Type: Spontaneous
  Country: US (occurrence: US)
  Receive Date: 20130624
  Receipt Date: 20131108
  Transmission Date: 20140711
  Serious: Yes (Hospitalization, Other)
  Sender: FDA-Public Use
  Company Number: US-BAYER-2013-074759

PATIENT
  Age: 18 Year
  Sex: Female

DRUGS (6)
  1. MIRENA [Suspect]
     Indication: CONTRACEPTION
     Dosage: 20 MCG/24HR, CONT
     Route: 015
     Dates: start: 20111019, end: 20130606
  2. MIRENA [Suspect]
     Indication: MENORRHAGIA
  3. IBUPROFEN [Concomitant]
     Indication: PAIN
     Dosage: 800 MG, EVERY EIGHT HOURS P.R.N
  4. VICODIN [Concomitant]
     Indication: PAIN
     Dosage: ONE TO TWO EVERY FOUR HOURS P.R.N
     Route: 048
  5. PHENERGAN [Concomitant]
     Indication: NAUSEA
     Dosage: 25 MG, EVERY EIGHT HOURS P.R.N.
  6. VIBRAMYCIN [Concomitant]
     Indication: INFECTION PROPHYLAXIS
     Dosage: 100 MG, BID FOR THREE DAYS
     Route: 048

REACTIONS (10)
  - Uterine perforation [None]
  - Genital haemorrhage [None]
  - Device dislocation [Not Recovered/Not Resolved]
  - Injury [None]
  - Pain [None]
  - Fear [None]
  - Emotional distress [None]
  - Scar [None]
  - Swelling [None]
  - Device dislocation [None]
